FAERS Safety Report 5790446-1 (Version None)
Quarter: 2008Q2

REPORT INFORMATION
  Report Type: 
  Country: None (occurrence: None)
  Receive Date: 20080626
  Receipt Date: 20080429
  Transmission Date: 20081010
  Serious: No
  Sender: FDA-Public Use
  Company Number: A0725241A

PATIENT
  Age: 69 Year
  Sex: Female
  Weight: 62 kg

DRUGS (11)
  1. ALLI [Suspect]
     Route: 048
  2. UNKNOWN MEDICATION [Concomitant]
  3. OMEGA 3 [Concomitant]
  4. VITAMIN E OIL [Concomitant]
  5. MULTI-VITAMIN [Concomitant]
  6. BROMELAIN [Concomitant]
  7. BREATHE RIGHT SNORE RELIEF [Concomitant]
  8. GARLIC [Concomitant]
  9. MULTI B VITAMIN SUPPLEMENT [Concomitant]
  10. MSN [Concomitant]
  11. AMBIEN CR [Concomitant]

REACTIONS (5)
  - COLD SWEAT [None]
  - DIZZINESS [None]
  - FEELING COLD [None]
  - HYPOTENSION [None]
  - INCOHERENT [None]
